FAERS Safety Report 5714334-1 (Version None)
Quarter: 2008Q2

REPORT INFORMATION
  Report Type: 
  Country: None (occurrence: None)
  Receive Date: 20080421
  Receipt Date: 20080409
  Transmission Date: 20081010
  Serious: Yes (Death, Life-Threatening, Other)
  Sender: FDA-Public Use
  Company Number: 2008-00983

PATIENT
  Age: 68 Year
  Sex: Female

DRUGS (1)
  1. VELCADE [Suspect]
     Indication: MULTIPLE MYELOMA
     Dosage: 1.30 MGM2, INTRAVENOUS
     Route: 042
     Dates: start: 20080205, end: 20080311

REACTIONS (11)
  - ALTERED STATE OF CONSCIOUSNESS [None]
  - CARDIOMEGALY [None]
  - CSF PROTEIN INCREASED [None]
  - DISEASE PROGRESSION [None]
  - DYSARTHRIA [None]
  - DYSSTASIA [None]
  - GENERAL PHYSICAL HEALTH DETERIORATION [None]
  - HAEMORRHAGE [None]
  - HYPERVISCOSITY SYNDROME [None]
  - PLATELET COUNT DECREASED [None]
  - SOMNOLENCE [None]
